FAERS Safety Report 25974018 (Version 1)
Quarter: 2025Q4

REPORT INFORMATION
  Report Type: Spontaneous
  Country: EU (occurrence: EU)
  Receive Date: 20251029
  Receipt Date: 20251029
  Transmission Date: 20260117
  Serious: Yes (Hospitalization, Other)
  Sender: BRISTOL-MYERS SQUIBB COMPANY
  Company Number: None

PATIENT
  Age: 91 Year
  Sex: Male

DRUGS (1)
  1. ELIQUIS [Suspect]
     Active Substance: APIXABAN
     Indication: Coronary arterial stent insertion
     Dosage: 5 MG EVERY 12 HOURS? 60 TABLETS
     Route: 048
     Dates: start: 20201005, end: 20251018

REACTIONS (2)
  - Subdural haematoma [Recovering/Resolving]
  - Craniocerebral injury [Unknown]

NARRATIVE: CASE EVENT DATE: 20250801
